FAERS Safety Report 4908059-X (Version None)
Quarter: 2006Q1

REPORT INFORMATION
  Report Type: 
  Country: None (occurrence: None)
  Receive Date: 20060210
  Receipt Date: 20060126
  Transmission Date: 20060701
  Serious: Yes (Death)
  Sender: FDA-Public Use
  Company Number: SE-ROCHE-433860

PATIENT
  Age: 23 Year
  Sex: Female

DRUGS (2)
  1. ROACCUTAN [Suspect]
     Indication: ACNE
     Route: 048
     Dates: end: 20030615
  2. ROACCUTAN [Suspect]
     Route: 048
     Dates: start: 20040215, end: 20040815

REACTIONS (2)
  - COMPLETED SUICIDE [None]
  - MORBID THOUGHTS [None]
